FAERS Safety Report 4781308-7 (Version None)
Quarter: 2005Q3

REPORT INFORMATION
  Report Type: 
  Country: None (occurrence: None)
  Receive Date: 20050928
  Receipt Date: 20050919
  Transmission Date: 20060218
  Serious: Yes (Other)
  Sender: FDA-Public Use
  Company Number: 2005GB01838

PATIENT
  Age: 31 Year
  Sex: Female

DRUGS (5)
  1. FELODIPINE [Suspect]
     Route: 048
     Dates: start: 20040414, end: 20050822
  2. CYCLOGEST [Concomitant]
     Route: 065
  3. ENOXAPARIN SODIUM [Concomitant]
     Route: 065
  4. ASPIRIN [Concomitant]
     Indication: ESSENTIAL HYPERTENSION
     Route: 065
  5. DEXAMETHASONE [Concomitant]
     Route: 065

REACTIONS (2)
  - ABORTION SPONTANEOUS [None]
  - DRUG EXPOSURE DURING PREGNANCY [None]
